APPROVED DRUG PRODUCT: PIPERACILLIN AND TAZOBACTAM
Active Ingredient: PIPERACILLIN SODIUM; TAZOBACTAM SODIUM
Strength: EQ 12GM BASE/VIAL;EQ 1.5GM BASE/VIAL
Dosage Form/Route: INJECTABLE;INJECTION
Application: A203557 | Product #001 | TE Code: AP
Applicant: SANDOZ INC
Approved: Oct 29, 2014 | RLD: No | RS: Yes | Type: RX